FAERS Safety Report 9926365 (Version 1)
Quarter: 2014Q1

REPORT INFORMATION
  Report Type: Spontaneous
  Country: US (occurrence: US)
  Receive Date: 20140226
  Receipt Date: 20140226
  Transmission Date: 20141002
  Serious: No
  Sender: FDA-Public Use
  Company Number: US-AMGEN-USASP2013085671

PATIENT
  Age: 26 Year
  Sex: Female

DRUGS (1)
  1. ENBREL [Suspect]
     Indication: BEHCET^S SYNDROME
     Dosage: 50 MG, WEEKLY
     Route: 058
     Dates: start: 20130905, end: 201310

REACTIONS (5)
  - Urticaria [Recovered/Resolved]
  - Feeling hot [Recovered/Resolved]
  - Erythema [Recovered/Resolved]
  - Local swelling [Recovered/Resolved]
  - Contusion [Recovered/Resolved]
